FAERS Safety Report 5320841-6 (Version None)
Quarter: 2007Q2

REPORT INFORMATION
  Report Type: 
  Country: None (occurrence: None)
  Receive Date: 20070502
  Receipt Date: 20070422
  Transmission Date: 20071010
  Serious: Yes (Other)
  Sender: FDA-Public Use
  Company Number: 2007SP000792

PATIENT
  Age: 55 Year
  Sex: Female
  Weight: 81.6475 kg

DRUGS (8)
  1. PEG-INTRON [Suspect]
     Indication: HEPATITIS C
     Dosage: SC
     Route: 058
     Dates: start: 20061117, end: 20070131
  2. RIBAVIRIN [Suspect]
     Indication: HEPATITIS C
     Dosage: PO
     Route: 048
     Dates: start: 20061117, end: 20070131
  3. NADOLOL (CON.) [Concomitant]
  4. NEUMEGA (CON.) [Concomitant]
  5. NEUPOGEN (CON.) [Concomitant]
  6. PROTONIX /01263201/ (CON.) [Concomitant]
  7. SPIRONOLACTONE (CON.) [Concomitant]
  8. IMITREX /01044801/ (CON.) [Concomitant]

REACTIONS (12)
  - ABDOMINAL DISTENSION [None]
  - ABDOMINAL RIGIDITY [None]
  - CACHEXIA [None]
  - CHEST X-RAY ABNORMAL [None]
  - COUGH [None]
  - FLUID RETENTION [None]
  - JOINT SWELLING [None]
  - LUNG INFECTION [None]
  - OEDEMA PERIPHERAL [None]
  - SKIN TIGHTNESS [None]
  - VOMITING [None]
  - WEIGHT INCREASED [None]
